FAERS Safety Report 13928920 (Version 1)
Quarter: 2017Q3

REPORT INFORMATION
  Report Type: Spontaneous
  Country: US (occurrence: US)
  Receive Date: 20170901
  Receipt Date: 20170901
  Transmission Date: 20171127
  Serious: Yes (Hospitalization, Other)
  Sender: FDA-Public Use
  Company Number: US-JUBILANT CADISTA PHARMACEUTICALS-2017JUB00241

PATIENT
  Age: 10 Year
  Sex: Male
  Weight: 29.25 kg

DRUGS (11)
  1. BUSPAR [Concomitant]
     Active Substance: BUSPIRONE HYDROCHLORIDE
     Dosage: 5 MG, 1X/DAY
  2. LAMOTRIGINE. [Suspect]
     Active Substance: LAMOTRIGINE
     Indication: AFFECTIVE DISORDER
     Dosage: 25 MG, 1X/DAY
     Route: 048
     Dates: start: 20170408, end: 20170414
  3. CLONIDINE. [Concomitant]
     Active Substance: CLONIDINE
     Dosage: 0.1 MG, AS NEEDED
     Route: 048
  4. BUSPAR [Concomitant]
     Active Substance: BUSPIRONE HYDROCHLORIDE
     Dosage: 10 MG, 2X/DAY
     Route: 048
  5. CONCERTA [Concomitant]
     Active Substance: METHYLPHENIDATE HYDROCHLORIDE
     Dosage: 27 MG, 1X/DAY AM
     Route: 048
  6. FLUOXETINE [Concomitant]
     Active Substance: FLUOXETINE HYDROCHLORIDE
     Dosage: 20 MG, 1X/DAY AM
     Route: 048
     Dates: start: 201704, end: 2017
  7. LAMOTRIGINE. [Suspect]
     Active Substance: LAMOTRIGINE
     Dosage: 25 MG, 2X/DAY
     Route: 048
     Dates: start: 20170415, end: 20170421
  8. LAMOTRIGINE. [Suspect]
     Active Substance: LAMOTRIGINE
     Dosage: 25 MG, 1X/DAY AM
     Route: 048
     Dates: start: 20170422, end: 20170428
  9. CLONIDINE. [Concomitant]
     Active Substance: CLONIDINE
     Dosage: 0.1 MG, 3X/DAY
     Route: 048
  10. LAMOTRIGINE. [Suspect]
     Active Substance: LAMOTRIGINE
     Dosage: 50 MG, 1X/DAY BEDTIME
     Route: 048
     Dates: start: 20170422, end: 20170428
  11. FLUOXETINE [Concomitant]
     Active Substance: FLUOXETINE HYDROCHLORIDE
     Dosage: 40 MG, 1X/DAY AM
     Route: 048
     Dates: start: 20170228, end: 201704

REACTIONS (10)
  - Off label use [Unknown]
  - Drug reaction with eosinophilia and systemic symptoms [Recovering/Resolving]
  - Dehydration [Recovering/Resolving]
  - Staphylococcal infection [Recovering/Resolving]
  - Stevens-Johnson syndrome [Recovering/Resolving]
  - Malaise [Unknown]
  - Haematochezia [Recovered/Resolved]
  - Dysuria [Unknown]
  - Headache [Recovering/Resolving]
  - Hypophagia [Recovering/Resolving]

NARRATIVE: CASE EVENT DATE: 20170408
